FAERS Safety Report 13407090 (Version 1)
Quarter: 2017Q2

REPORT INFORMATION
  Report Type: Spontaneous
  Country: FR (occurrence: FR)
  Receive Date: 20170405
  Receipt Date: 20170405
  Transmission Date: 20170830
  Serious: Yes (Hospitalization)
  Sender: FDA-Public Use
  Company Number: PHHY2017FR048693

PATIENT
  Age: 63 Year
  Sex: Female

DRUGS (6)
  1. FEMARA [Suspect]
     Active Substance: LETROZOLE
     Indication: BREAST CANCER
     Dosage: 2.5 MG, UNK
     Route: 048
     Dates: start: 201602
  2. LOVENOX [Suspect]
     Active Substance: ENOXAPARIN SODIUM
     Indication: PRODUCT USED FOR UNKNOWN INDICATION
     Dosage: 1 DF, QD (4000 IU ANTI-XA?0.4ML)
     Route: 058
  3. SOLUPRED [Suspect]
     Active Substance: PREDNISOLONE
     Indication: BREAST CANCER
     Dosage: 3 DF, QD (20 MG)
     Route: 048
  4. XGEVA [Suspect]
     Active Substance: DENOSUMAB
     Indication: BREAST CANCER
     Dosage: 120 MG, UNK
     Route: 058
     Dates: start: 201602
  5. HERCEPTIN [Suspect]
     Active Substance: TRASTUZUMAB
     Indication: BREAST CANCER
     Dosage: UNK
     Route: 042
     Dates: start: 201510
  6. KEPPRA [Concomitant]
     Active Substance: LEVETIRACETAM
     Indication: PRODUCT USED FOR UNKNOWN INDICATION
     Dosage: 2 DF, QD (500 MG)

REACTIONS (2)
  - Duodenal ulcer perforation [Recovering/Resolving]
  - Gastroduodenal haemorrhage [Recovered/Resolved]

NARRATIVE: CASE EVENT DATE: 20170304
